FAERS Safety Report 9150935 (Version 1)
Quarter: 2013Q1

REPORT INFORMATION
  Report Type: Spontaneous
  Country: US (occurrence: US)
  Receive Date: 20130308
  Receipt Date: 20130308
  Transmission Date: 20140127
  Serious: No
  Sender: FDA-Public Use
  Company Number: US-GLAXOSMITHKLINE-A0968418A

PATIENT
  Age: 44 Year
  Sex: Female

DRUGS (4)
  1. OLUX E [Suspect]
     Indication: DERMATITIS ATOPIC
     Route: 061
     Dates: start: 20120228, end: 20120229
  2. ZANTAC [Concomitant]
  3. BENADRYL [Concomitant]
  4. ZYRTEC [Concomitant]

REACTIONS (3)
  - Urticaria [Recovering/Resolving]
  - Erythema [Unknown]
  - Pruritus [Unknown]
